FAERS Safety Report 6151847-5 (Version None)
Quarter: 2009Q2

REPORT INFORMATION
  Report Type: 
  Country: None (occurrence: None)
  Receive Date: 20090408
  Receipt Date: 20090330
  Transmission Date: 20091009
  Serious: Yes (Death, Other)
  Sender: FDA-Public Use
  Company Number: CLOF-1000490

PATIENT

DRUGS (4)
  1. CLOLAR [Suspect]
     Indication: ADRENOLEUKODYSTROPHY
     Dosage: 40 MG/M2,
  2. CAMPATH [Suspect]
     Indication: ADRENOLEUKODYSTROPHY
  3. BUSULFAN (BUSULFAN) [Suspect]
     Indication: ADRENOLEUKODYSTROPHY
     Dosage: 4 MG/KG;
  4. MELPHALAN (MELPHALAN) [Suspect]
     Indication: ADRENOLEUKODYSTROPHY
     Dosage: 140 MG/KG;

REACTIONS (2)
  - ENGRAFT FAILURE [None]
  - INFECTION [None]
